FAERS Safety Report 16438287 (Version 3)
Quarter: 2019Q4

REPORT INFORMATION
  Report Type: Report from Study
  Country: US (occurrence: US)
  Receive Date: 20190617
  Receipt Date: 20191227
  Transmission Date: 20200122
  Serious: Yes (Other)
  Sender: FDA-Public Use
  Company Number: US-UCBSA-2019013346

PATIENT
  Age: 20 Year

DRUGS (2)
  1. LEVETIRACETAM. [Suspect]
     Active Substance: LEVETIRACETAM
     Indication: PRODUCT USED FOR UNKNOWN INDICATION
     Dosage: UNK
  2. LAMICTAL [Suspect]
     Active Substance: LAMOTRIGINE
     Indication: PRODUCT USED FOR UNKNOWN INDICATION
     Dosage: UNK

REACTIONS (8)
  - Feeling abnormal [Unknown]
  - Panic attack [Unknown]
  - Anxiety [Unknown]
  - Depression [Recovered/Resolved]
  - Adverse drug reaction [Unknown]
  - Seizure [Unknown]
  - Crying [Unknown]
  - Suicidal ideation [Unknown]
